FAERS Safety Report 23766393 (Version 1)
Quarter: 2024Q2

REPORT INFORMATION
  Report Type: Spontaneous
  Country: CA (occurrence: CA)
  Receive Date: 20240422
  Receipt Date: 20240422
  Transmission Date: 20240716
  Serious: Yes (Life-Threatening, Hospitalization, Other)
  Sender: FDA-Public Use
  Company Number: CA-BAXTER-2024BAX017001

PATIENT
  Age: 2 Year
  Sex: Male

DRUGS (4)
  1. DOXORUBICIN [Suspect]
     Active Substance: DOXORUBICIN
     Indication: Burkitt^s lymphoma
     Dosage: 38 MILLIGRAM, ONCE, DOSAGE FORM: SOLUTION INTRAVENOUS
     Route: 042
  2. CYCLOPHOSPHAMIDE [Suspect]
     Active Substance: CYCLOPHOSPHAMIDE
     Indication: Burkitt^s lymphoma
     Dosage: 315.0 MILLIGRAM, 1 EVERY 12 HOURS, DOSAGE FORM: POWDER FOR SOLUTION INTRAVENOUS
     Route: 042
  3. METHOTREXATE SODIUM [Suspect]
     Active Substance: METHOTREXATE SODIUM
     Indication: Burkitt^s lymphoma
     Dosage: 5040.0 MILLIGRAM, 1 EVERY 24 HOURS, DOSAGE FORM: SOLUTION INTRAVENOUS, (WITHOUT PRESERVATIVE (20 ML
     Route: 042
  4. TRUXIMA [Suspect]
     Active Substance: RITUXIMAB-ABBS
     Indication: Burkitt^s lymphoma
     Dosage: 250.0 MILLIGRAM, ONCE, DOSAGE FORM: SOLUTION INTRAVENOUS, (SINGLE-DOSE VIAL)
     Route: 042

REACTIONS (1)
  - Febrile neutropenia [Recovered/Resolved]
